FAERS Safety Report 11813220 (Version 1)
Quarter: 2015Q4

REPORT INFORMATION
  Report Type: Spontaneous
  Country: US (occurrence: None)
  Receive Date: 20151207
  Receipt Date: 20151207
  Transmission Date: 20160305
  Serious: Yes (Other)
  Sender: FDA-Public Use
  Company Number: None

PATIENT
  Age: 46 Year
  Sex: Female
  Weight: 38.47 kg

DRUGS (1)
  1. SCOPOLAMINE PATCH 1.5MG/7HR NOVARTIS [Suspect]
     Active Substance: SCOPOLAMINE
     Indication: DROOLING
     Dosage: 1.5MG/72HR PATCH
     Route: 062
     Dates: start: 20151119, end: 20151120

REACTIONS (1)
  - Seizure [None]

NARRATIVE: CASE EVENT DATE: 20151120
